FAERS Safety Report 24617109 (Version 2)
Quarter: 2024Q4

REPORT INFORMATION
  Report Type: Spontaneous
  Country: US (occurrence: US)
  Receive Date: 20241114
  Receipt Date: 20241119
  Transmission Date: 20250114
  Serious: No
  Sender: CHATTEM
  Company Number: US-OPELLA-2024OHG037965

PATIENT

DRUGS (1)
  1. SELSUN BLUE 2-IN-1 [Suspect]
     Active Substance: SELENIUM SULFIDE
     Indication: Product used for unknown indication
     Route: 061

REACTIONS (1)
  - Alopecia [Unknown]
